FAERS Safety Report 4337773-2 (Version None)
Quarter: 2004Q2

REPORT INFORMATION
  Report Type: 
  Country: None (occurrence: None)
  Receive Date: 20040408
  Receipt Date: 20040401
  Transmission Date: 20050107
  Serious: Yes (Hospitalization)
  Sender: FDA-Public Use
  Company Number: 2002PK00721

PATIENT
  Age: 75 Year
  Sex: Male
  Weight: 94 kg

DRUGS (8)
  1. ROSUVASTATIN [Suspect]
     Indication: HYPERCHOLESTEROLAEMIA
     Dosage: 10 MG DAILY PO
     Route: 048
     Dates: start: 20020711
  2. DIGITOXIN TAB [Suspect]
     Dates: end: 20020701
  3. DIGITOXIN TAB [Suspect]
     Dates: start: 20020701
  4. CARMEN [Concomitant]
  5. ASPIRIN [Concomitant]
  6. PRES [Concomitant]
  7. OMNIC [Concomitant]
  8. HCT [Concomitant]

REACTIONS (9)
  - ATRIAL FIBRILLATION [None]
  - ATRIAL THROMBOSIS [None]
  - CARDIAC DISORDER [None]
  - CARDIOACTIVE DRUG LEVEL INCREASED [None]
  - HYPERAEMIA [None]
  - PLEURAL EFFUSION [None]
  - PULMONARY CONGESTION [None]
  - TACHYARRHYTHMIA [None]
  - X-RAY ABNORMAL [None]
